FAERS Safety Report 4390246-3 (Version None)
Quarter: 2004Q2

REPORT INFORMATION
  Report Type: 
  Country: None (occurrence: None)
  Receive Date: 20040630
  Receipt Date: 20040621
  Transmission Date: 20050107
  Serious: Yes (Hospitalization)
  Sender: FDA-Public Use
  Company Number: 02100-JPN-04-0135

PATIENT
  Age: 56 Year
  Sex: Male

DRUGS (7)
  1. CILOSTAZOL [Suspect]
     Indication: CEREBRAL INFARCTION
     Dosage: 200 MG, ORAL
     Route: 048
     Dates: start: 20040425, end: 20040512
  2. PROPIVERINE HYDROCHLORIDE [Suspect]
     Indication: NEUROGENIC BLADDER
     Dosage: 20 MG ORAL
     Route: 048
     Dates: start: 20040419, end: 20040512
  3. MAGNESIUM OXIDE [Concomitant]
  4. ZOPICLONE [Concomitant]
  5. TAMSULOSIN HYDROCHLORIDE [Concomitant]
  6. OLOPATADINE HYDROCHLORIDE [Concomitant]
  7. TEPRENONE [Concomitant]

REACTIONS (10)
  - ALANINE AMINOTRANSFERASE INCREASED [None]
  - BLOOD PRESSURE INCREASED [None]
  - CHEST PAIN [None]
  - DIZZINESS [None]
  - DRUG EFFECT DECREASED [None]
  - HEADACHE [None]
  - MALAISE [None]
  - NAUSEA [None]
  - RASH [None]
  - VOMITING [None]
